FAERS Safety Report 10724087 (Version 1)
Quarter: 2015Q1

REPORT INFORMATION
  Report Type: Spontaneous
  Country: US (occurrence: None)
  Receive Date: 20150116
  Receipt Date: 20150116
  Transmission Date: 20150721
  Serious: Yes (Disabling)
  Sender: FDA-Public Use
  Company Number: None

PATIENT
  Age: 18 Year
  Sex: Female
  Weight: 102.97 kg

DRUGS (2)
  1. OXCARBAZEPINE. [Suspect]
     Active Substance: OXCARBAZEPINE
     Indication: MIGRAINE
     Dosage: 300 MG, 2 PILLS A DAY TWICE DAILY TAKEN BY MOUTH
     Route: 048
     Dates: start: 20140801
  2. OXCARBAZEPINE. [Suspect]
     Active Substance: OXCARBAZEPINE
     Indication: SEIZURE
     Dosage: 300 MG, 2 PILLS A DAY TWICE DAILY TAKEN BY MOUTH
     Route: 048
     Dates: start: 20140801

REACTIONS (70)
  - Eye movement disorder [None]
  - Diarrhoea [None]
  - Bradyphrenia [None]
  - Mood swings [None]
  - Toothache [None]
  - Nasopharyngitis [None]
  - Yellow skin [None]
  - Eye swelling [None]
  - Headache [None]
  - Vomiting [None]
  - Hypoaesthesia [None]
  - Paraesthesia [None]
  - Weight increased [None]
  - Tremor [None]
  - Coordination abnormal [None]
  - Back pain [None]
  - Muscular weakness [None]
  - Eye contusion [None]
  - Swelling face [None]
  - Joint swelling [None]
  - Dizziness [None]
  - Dyspepsia [None]
  - Disturbance in attention [None]
  - Swelling [None]
  - Vulvovaginal pruritus [None]
  - Vulvovaginal burning sensation [None]
  - Fatigue [None]
  - Eye irritation [None]
  - Dysgeusia [None]
  - Epistaxis [None]
  - Chest pain [None]
  - Chills [None]
  - Vulvovaginal swelling [None]
  - Thirst [None]
  - Rash macular [None]
  - Somnolence [None]
  - Abdominal pain upper [None]
  - Fall [None]
  - Speech disorder [None]
  - Memory impairment [None]
  - Ear pain [None]
  - Hot flush [None]
  - Cough [None]
  - Seizure [None]
  - Constipation [None]
  - Dry mouth [None]
  - Movement disorder [None]
  - Nervousness [None]
  - Erythema [None]
  - Vaginal discharge [None]
  - Arthralgia [None]
  - Oropharyngeal pain [None]
  - Lip swelling [None]
  - Peripheral swelling [None]
  - Nausea [None]
  - Cold sweat [None]
  - Lymphadenopathy [None]
  - Diplopia [None]
  - Decreased appetite [None]
  - Acne [None]
  - Migraine [None]
  - Rash [None]
  - Dry eye [None]
  - Muscle tightness [None]
  - Hyperhidrosis [None]
  - Vulvovaginal discomfort [None]
  - Pharyngeal oedema [None]
  - Swollen tongue [None]
  - Asthenia [None]
  - Blister [None]

NARRATIVE: CASE EVENT DATE: 20150115
